FAERS Safety Report 5275153-6 (Version None)
Quarter: 2007Q1

REPORT INFORMATION
  Report Type: 
  Country: None (occurrence: None)
  Receive Date: 20070326
  Receipt Date: 20070313
  Transmission Date: 20070707
  Serious: Yes (Hospitalization)
  Sender: FDA-Public Use
  Company Number: JP-NOVOPROD-261740

PATIENT
  Age: 16 Year
  Sex: Female
  Weight: 46 kg

DRUGS (7)
  1. NORDITROPIN SIMPLEXX [Suspect]
     Indication: GROWTH HORMONE DEFICIENCY
     Route: 058
     Dates: start: 20010123, end: 20060401
  2. DESMOPRESSIN                       /00361902/ [Concomitant]
     Dosage: 2.5 UG, QD
     Dates: start: 20000828
  3. THYRADIN S [Concomitant]
     Dosage: 50 UG, QD
     Route: 048
     Dates: start: 20041005
  4. CORTRIL [Concomitant]
     Dosage: 10 MG, QD
     Route: 048
     Dates: start: 20041005
  5. ESTRADERM [Concomitant]
     Dosage: 0.18MG - 0.36MG, QD
     Dates: start: 20050914
  6. PREMARIN [Concomitant]
     Dosage: 1.25 MG, QD
     Dates: start: 20060601, end: 20060101
  7. PROVERA [Concomitant]
     Dosage: 5 MG, UNK
     Route: 048
     Dates: start: 20060510, end: 20060712

REACTIONS (1)
  - GERM CELL CANCER [None]
